FAERS Safety Report 6800617-0 (Version None)
Quarter: 2010Q2

REPORT INFORMATION
  Report Type: 
  Country: None (occurrence: None)
  Receive Date: 20100625
  Receipt Date: 20100625
  Transmission Date: 20101027
  Serious: No
  Sender: FDA-Public Use
  Company Number: None

PATIENT
  Age: 62 Year
  Sex: Male
  Weight: 131.0895 kg

DRUGS (2)
  1. LEVAQUIN [Suspect]
     Indication: PNEUMONIA
     Dosage: 1 TABLET DAILY PO
     Route: 048
     Dates: start: 20100616, end: 20100621
  2. PREDNISONE [Suspect]
     Indication: PLEURISY
     Dosage: 1 TABLET DAILY PO
     Route: 048
     Dates: start: 20100616, end: 20100618

REACTIONS (2)
  - ARTHRALGIA [None]
  - TENDONITIS [None]
